FAERS Safety Report 8185450-2 (Version None)
Quarter: 2012Q1

REPORT INFORMATION
  Report Type: 
  Country: None (occurrence: None)
  Receive Date: 20120305
  Receipt Date: 20120224
  Transmission Date: 20120608
  Serious: No
  Sender: FDA-Public Use
  Company Number: US-BAYER-2012-019366

PATIENT
  Age: 73 Year
  Sex: Male

DRUGS (11)
  1. PLAVIX [Concomitant]
  2. LEVITRA [Suspect]
     Dosage: 20 MG, UNK
     Route: 048
     Dates: start: 20120207
  3. AMLODIPINE [Concomitant]
  4. LEVITRA [Suspect]
     Dosage: 20 MG, UNK
     Route: 048
     Dates: start: 20120217
  5. LISINOPRIL [Concomitant]
  6. LEVOTHYROXINE SODIUM [Concomitant]
  7. HYDROCHLOROTHIAZIDE [Concomitant]
  8. ZETIA [Concomitant]
  9. LEVITRA [Suspect]
     Indication: ERECTILE DYSFUNCTION
     Dosage: 20 MG, UNK
     Route: 048
     Dates: start: 20100201
  10. RANITIDINE [Concomitant]
  11. INSULIN [Concomitant]

REACTIONS (3)
  - HEADACHE [None]
  - FATIGUE [None]
  - FLUSHING [None]
